FAERS Safety Report 4846231-8 (Version None)
Quarter: 2005Q4

REPORT INFORMATION
  Report Type: 
  Country: None (occurrence: None)
  Receive Date: 20051206
  Receipt Date: 20040121
  Transmission Date: 20060501
  Serious: Yes (Hospitalization)
  Sender: FDA-Public Use
  Company Number: JP-ABBOTT-04P-087-0248174-00

PATIENT
  Sex: Male

DRUGS (4)
  1. KLARICID [Suspect]
     Indication: LARYNGOPHARYNGITIS
     Route: 048
     Dates: start: 20020605, end: 20020607
  2. ACETAMINOPHEN [Suspect]
     Indication: LARYNGOPHARYNGITIS
     Route: 048
     Dates: start: 20020605, end: 20020607
  3. LYSOZYME HYDROCHLORIDE [Suspect]
     Indication: LARYNGOPHARYNGITIS
     Route: 048
     Dates: start: 20020605, end: 20020607
  4. LINCOMYCIN HYDROCHLORIDE [Suspect]
     Indication: LARYNGOPHARYNGITIS
     Route: 048
     Dates: start: 20020605, end: 20020606

REACTIONS (4)
  - LIVER DISORDER [None]
  - OBLITERATIVE BRONCHIOLITIS [None]
  - OBSTRUCTIVE AIRWAYS DISORDER [None]
  - TOXIC EPIDERMAL NECROLYSIS [None]
